FAERS Safety Report 5238676-1 (Version None)
Quarter: 2007Q1

REPORT INFORMATION
  Report Type: 
  Country: None (occurrence: None)
  Receive Date: 20070214
  Receipt Date: 20070214
  Transmission Date: 20070707
  Serious: Yes (Hospitalization)
  Sender: FDA-Public Use
  Company Number: None

PATIENT
  Age: 71 Year
  Sex: Male
  Weight: 116.5744 kg

DRUGS (18)
  1. NPH INSULIN [Suspect]
     Indication: DIABETES MELLITUS
  2. METFORMIN 850 MG TID [Suspect]
     Indication: DIABETES MELLITUS
  3. ACCU-CHEK COMFORT CV (GLUCOSE) TEST STRIP [Concomitant]
  4. AMITRIPTYLINE HCL [Concomitant]
  5. ASPIRIN [Concomitant]
  6. CLOTRIMAZOLE [Concomitant]
  7. FUROSEMIDE [Concomitant]
  8. HYDROCODONE /ACETAMINOPHEN [Concomitant]
  9. INSULIN NPH HUMAN/NOVOLIN N [Concomitant]
  10. LANCET, TECHLITE [Concomitant]
  11. LOVASTATIN [Concomitant]
  12. METFORMIN HCL [Concomitant]
  13. METOPROLOL TARTRATE [Concomitant]
  14. NAPROXEN [Concomitant]
  15. RANITIDINE HCL [Concomitant]
  16. VALSARTAN [Concomitant]
  17. INSULIN REG HUMAN/NOVOLIN R [Concomitant]
  18. COUMADIN [Concomitant]

REACTIONS (3)
  - FALL [None]
  - HYPOGLYCAEMIA [None]
  - LOSS OF CONSCIOUSNESS [None]
